FAERS Safety Report 9452048 (Version 1)
Quarter: 2013Q3

REPORT INFORMATION
  Report Type: Spontaneous
  Country: US (occurrence: US)
  Receive Date: 20130812
  Receipt Date: 20130812
  Transmission Date: 20140515
  Serious: No
  Sender: FDA-Public Use
  Company Number: US-BIOGENIDEC-2013BI073316

PATIENT
  Age: 44 Year
  Sex: Male

DRUGS (7)
  1. TYSABRI [Suspect]
     Indication: MULTIPLE SCLEROSIS
     Route: 042
     Dates: start: 20121128
  2. XOPENEX [Concomitant]
     Indication: DYSPNOEA
     Route: 055
  3. XOPENEX [Concomitant]
     Indication: ASTHMA
     Route: 055
  4. XOPENEX [Concomitant]
     Indication: CHRONIC OBSTRUCTIVE PULMONARY DISEASE
     Route: 055
  5. ADVAIR [Concomitant]
     Indication: DYSPNOEA
     Route: 055
  6. ADVAIR [Concomitant]
     Indication: ASTHMA
     Route: 055
  7. ADVAIR [Concomitant]
     Indication: CHRONIC OBSTRUCTIVE PULMONARY DISEASE
     Route: 055

REACTIONS (5)
  - Diarrhoea [Recovered/Resolved]
  - Haemorrhoids [Recovered/Resolved]
  - Haematochezia [Recovered/Resolved]
  - Vomiting [Recovered/Resolved]
  - Constipation [Recovered/Resolved]
